FAERS Safety Report 14313566 (Version 1)
Quarter: 2017Q4

REPORT INFORMATION
  Report Type: Spontaneous
  Country: ES (occurrence: ES)
  Receive Date: 20171221
  Receipt Date: 20171221
  Transmission Date: 20180321
  Serious: Yes (Hospitalization)
  Sender: FDA-Public Use
  Company Number: ES-PFIZER INC-2017535627

PATIENT
  Age: 57 Year

DRUGS (6)
  1. ETOPOSIDE. [Interacting]
     Active Substance: ETOPOSIDE
     Dosage: UNK
     Route: 042
     Dates: start: 20161219, end: 20161227
  2. DOXORUBICIN HCL [Interacting]
     Active Substance: DOXORUBICIN HYDROCHLORIDE
     Indication: LYMPHOMA
     Dosage: UNK
     Route: 042
     Dates: start: 20161219, end: 20161227
  3. METILPREDNISOLONA /00049601/ [Interacting]
     Active Substance: METHYLPREDNISOLONE
     Indication: LYMPHOMA
     Dosage: UNK
     Route: 042
     Dates: start: 20161219, end: 20161227
  4. VINCRISTINE SULFATE. [Suspect]
     Active Substance: VINCRISTINE SULFATE
     Indication: LYMPHOMA
     Dosage: UNK
     Route: 042
     Dates: start: 20161219, end: 20161227
  5. BORTEZOMIB [Interacting]
     Active Substance: BORTEZOMIB
     Indication: LYMPHOMA
     Dosage: UNK
     Route: 042
     Dates: start: 20161219, end: 20161227
  6. CYCLOPHOSPHAMIDE. [Interacting]
     Active Substance: CYCLOPHOSPHAMIDE
     Indication: LYMPHOMA
     Dosage: UNK
     Route: 042
     Dates: start: 20161219, end: 20161227

REACTIONS (2)
  - Influenza [Recovered/Resolved]
  - Drug interaction [Unknown]

NARRATIVE: CASE EVENT DATE: 20161230
